FAERS Safety Report 10879294 (Version 1)
Quarter: 2015Q1

REPORT INFORMATION
  Report Type: Spontaneous
  Country: CA (occurrence: CA)
  Receive Date: 20150302
  Receipt Date: 20150302
  Transmission Date: 20150721
  Serious: Yes (Hospitalization, Other)
  Sender: FDA-Public Use
  Company Number: CA-GLAXOSMITHKLINE-CA2015GSK025457

PATIENT
  Sex: Male

DRUGS (1)
  1. AVODART [Suspect]
     Active Substance: DUTASTERIDE
     Indication: PRODUCT USED FOR UNKNOWN INDICATION
     Dosage: 1 UNK, QD
     Dates: start: 2010

REACTIONS (6)
  - Delirium [Recovered/Resolved]
  - Limb deformity [Unknown]
  - Breast pain [Unknown]
  - Breast enlargement [Unknown]
  - Nervous system disorder [Recovered/Resolved]
  - Nipple disorder [Unknown]
